FAERS Safety Report 17920308 (Version 1)
Quarter: 2020Q2

REPORT INFORMATION
  Report Type: Spontaneous
  Country: CA (occurrence: CA)
  Receive Date: 20200620
  Receipt Date: 20200620
  Transmission Date: 20200714
  Serious: Yes (Hospitalization)
  Sender: FDA-Public Use
  Company Number: CA-TEVA-2020-CA-1789795

PATIENT
  Age: 35 Year
  Sex: Female
  Weight: 72 kg

DRUGS (7)
  1. ETHINYLESTRADIOL W/LEVONORGESTREL [Suspect]
     Active Substance: ETHINYL ESTRADIOL\LEVONORGESTREL
     Indication: INTENTIONAL OVERDOSE
     Route: 065
  2. VITAMIN B COMPLEX [Suspect]
     Active Substance: CYANOCOBALAMIN\DEXPANTHENOL\NIACINAMIDE\PYRIDOXINE HYDROCHLORIDE\RIBOFLAVIN 5^-PHOSPHATE SODIUM\THIAMINE HYDROCHLORIDE\VITAMIN B COMPLEX
     Indication: INTENTIONAL OVERDOSE
     Route: 065
  3. TYROSINE [Concomitant]
     Active Substance: TYROSINE
  4. HERBALS HOMEOPATHIC/MINERALS NOS [Concomitant]
  5. EVENING PRIMROSE OIL[OENOTHERA BIENNISOIL] [Concomitant]
     Active Substance: EVENING PRIMROSE OIL\HERBALS
  6. VITAMIN C [Suspect]
     Active Substance: ASCORBIC ACID
     Indication: INTENTIONAL OVERDOSE
     Route: 065
  7. FIBRESMART [Concomitant]

REACTIONS (4)
  - Abdominal pain [Unknown]
  - Blood potassium decreased [Unknown]
  - Nausea [Unknown]
  - Intentional overdose [Unknown]
